FAERS Safety Report 9014167 (Version 1)
Quarter: 2013Q1

REPORT INFORMATION
  Report Type: Spontaneous
  Country: US (occurrence: US)
  Receive Date: 20130115
  Receipt Date: 20130115
  Transmission Date: 20140127
  Serious: Yes (Hospitalization)
  Sender: FDA-Public Use
  Company Number: US-GILEAD-2013-0067854

PATIENT
  Sex: Female

DRUGS (2)
  1. LETAIRIS [Suspect]
     Indication: COR PULMONALE CHRONIC
     Dates: start: 20071130
  2. VENTAVIS [Concomitant]

REACTIONS (3)
  - Amputation [Unknown]
  - Cardiovascular disorder [Unknown]
  - Influenza [Unknown]
